FAERS Safety Report 24696286 (Version 2)
Quarter: 2024Q4

REPORT INFORMATION
  Report Type: Spontaneous
  Country: SI (occurrence: SI)
  Receive Date: 20241204
  Receipt Date: 20241227
  Transmission Date: 20250115
  Serious: Yes (Other)
  Sender: BAYER HEALTHCARE PHARMACEUTICALS INC.
  Company Number: SI-BAYER-2024A168504

PATIENT
  Age: 67 Year
  Sex: Male

DRUGS (10)
  1. FINERENONE [Suspect]
     Active Substance: FINERENONE
     Indication: Chronic kidney disease
     Dosage: 10 MG
     Dates: start: 202410
  2. FINERENONE [Suspect]
     Active Substance: FINERENONE
     Indication: Type 2 diabetes mellitus
  3. PERINDOPRIL [Concomitant]
     Active Substance: PERINDOPRIL
  4. AMLODIPINE [Concomitant]
     Active Substance: AMLODIPINE BESYLATE
  5. Indapamide renewal [Concomitant]
  6. ATORVASTATIN [Concomitant]
     Active Substance: ATORVASTATIN
  7. METFORMIN [Concomitant]
     Active Substance: METFORMIN HYDROCHLORIDE
  8. EMPAGLIFLOZIN [Concomitant]
     Active Substance: EMPAGLIFLOZIN
  9. ASPIRIN [Concomitant]
     Active Substance: ASPIRIN
  10. RIVAROXABAN [Concomitant]
     Active Substance: RIVAROXABAN

REACTIONS (4)
  - Urine albumin/creatinine ratio increased [None]
  - Glomerular filtration rate decreased [None]
  - Blood creatinine increased [None]
  - Dehydration [None]

NARRATIVE: CASE EVENT DATE: 20240101
